FAERS Safety Report 24643867 (Version 4)
Quarter: 2025Q2

REPORT INFORMATION
  Report Type: Spontaneous
  Country: US (occurrence: US)
  Receive Date: 20241120
  Receipt Date: 20250609
  Transmission Date: 20250716
  Serious: No
  Sender: Day One Biopharmaceuticals
  Company Number: US-Day One Biopharmaceuticals Inc.-2024US000493

PATIENT

DRUGS (2)
  1. OJEMDA [Suspect]
     Active Substance: TOVORAFENIB
     Indication: Glioma
     Route: 065
  2. OJEMDA [Suspect]
     Active Substance: TOVORAFENIB
     Route: 065
     Dates: end: 20250127

REACTIONS (4)
  - Melanocytic naevus [Recovered/Resolved]
  - Photosensitivity reaction [Unknown]
  - Rash [Unknown]
  - Hair colour changes [Recovered/Resolved]
